FAERS Safety Report 8054642-5 (Version None)
Quarter: 2012Q1

REPORT INFORMATION
  Report Type: 
  Country: None (occurrence: None)
  Receive Date: 20120119
  Receipt Date: 20120112
  Transmission Date: 20120608
  Serious: Yes (Other)
  Sender: FDA-Public Use
  Company Number: CH-VERTEX PHARMACEUTICALS INC.-000000000000000012

PATIENT
  Sex: Male
  Weight: 101 kg

DRUGS (3)
  1. COPEGUS [Concomitant]
     Indication: HEPATITIS C
     Route: 065
     Dates: start: 20111014
  2. PEGASYS [Concomitant]
     Indication: HEPATITIS C
     Route: 065
     Dates: start: 20111014
  3. VX-950 [Suspect]
     Indication: HEPATITIS C
     Dosage: DOSAGE FORM: TABLET
     Route: 048
     Dates: start: 20111014, end: 20111216

REACTIONS (1)
  - RASH [None]
